FAERS Safety Report 7742725-6 (Version None)
Quarter: 2011Q3

REPORT INFORMATION
  Report Type: 
  Country: None (occurrence: None)
  Receive Date: 20110906
  Receipt Date: 20110825
  Transmission Date: 20111222
  Serious: Yes (Other)
  Sender: FDA-Public Use
  Company Number: 2011SP040205

PATIENT
  Age: 5 Year
  Sex: Female
  Weight: 19.5 kg

DRUGS (3)
  1. MOMETASONE FUROATE [Suspect]
     Indication: HYPERSENSITIVITY
     Dosage: 2 DF;Q12H;
     Dates: start: 20110801
  2. AVIANT (DESLORATADINE /01398501/) [Concomitant]
     Indication: HYPERSENSITIVITY
     Dosage: 5 ML;Q12H;
     Dates: start: 20110801
  3. SINGULAIR [Suspect]
     Indication: HYPERSENSITIVITY
     Dosage: 5 MG;QD;

REACTIONS (2)
  - TACHYCARDIA [None]
  - OVERDOSE [None]
